FAERS Safety Report 5134128-8 (Version None)
Quarter: 2006Q4

REPORT INFORMATION
  Report Type: 
  Country: None (occurrence: None)
  Receive Date: 20061024
  Receipt Date: 20061017
  Transmission Date: 20070319
  Serious: Yes (Other)
  Sender: FDA-Public Use
  Company Number: US-BRISTOL-MYERS SQUIBB COMPANY-13544812

PATIENT
  Age: 6 Year
  Sex: Male
  Weight: 26 kg

DRUGS (4)
  1. REYATAZ [Suspect]
     Route: 048
     Dates: start: 20040421
  2. RITONAVIR [Suspect]
     Route: 048
     Dates: start: 20040421
  3. ZERIT [Concomitant]
  4. EPIVIR [Concomitant]

REACTIONS (2)
  - BLOOD BILIRUBIN INCREASED [None]
  - BLOOD BILIRUBIN UNCONJUGATED INCREASED [None]
